FAERS Safety Report 9232604 (Version 1)
Quarter: 2013Q2

REPORT INFORMATION
  Report Type: Spontaneous
  Country: US (occurrence: None)
  Receive Date: 20130415
  Receipt Date: 20130415
  Transmission Date: 20140414
  Serious: Yes (Death)
  Sender: FDA-Public Use
  Company Number: None

PATIENT
  Age: 41 Year
  Sex: Male
  Weight: 70.3 kg

DRUGS (1)
  1. ZANAMIVIR [Suspect]

REACTIONS (13)
  - Bradycardia [None]
  - Pulse absent [None]
  - Febrile neutropenia [None]
  - Bandaemia [None]
  - Cough [None]
  - Myalgia [None]
  - Decreased appetite [None]
  - Chills [None]
  - Dyspnoea [None]
  - Diarrhoea [None]
  - Renal failure acute [None]
  - Respiratory failure [None]
  - Lung infiltration [None]
